FAERS Safety Report 9550961 (Version 1)
Quarter: 2013Q3

REPORT INFORMATION
  Report Type: Spontaneous
  Country: US (occurrence: US)
  Receive Date: 20130924
  Receipt Date: 20130924
  Transmission Date: 20140515
  Serious: No
  Sender: FDA-Public Use
  Company Number: US-SANOFI-AVENTIS-2013SA050747

PATIENT
  Age: 29 Year
  Sex: Female
  Weight: 76 kg

DRUGS (4)
  1. AUBAGIO [Suspect]
     Indication: MULTIPLE SCLEROSIS
     Route: 048
     Dates: start: 201301
  2. AUBAGIO [Suspect]
     Indication: MULTIPLE SCLEROSIS
     Route: 048
     Dates: start: 201301
  3. SERTRALINE [Concomitant]
     Indication: ANXIETY
     Route: 065
     Dates: start: 2009
  4. RITALIN [Concomitant]
     Indication: CENTRAL NERVOUS SYSTEM STIMULATION
     Route: 065
     Dates: start: 2012

REACTIONS (1)
  - Alopecia [Recovering/Resolving]
